FAERS Safety Report 12748200 (Version 1)
Quarter: 2016Q3

REPORT INFORMATION
  Report Type: Spontaneous
  Country: US (occurrence: US)
  Receive Date: 20160915
  Receipt Date: 20160915
  Transmission Date: 20161109
  Serious: No
  Sender: FDA-Public Use
  Company Number: US-ASTELLAS-2016US033536

PATIENT
  Age: 85 Year
  Sex: Male

DRUGS (1)
  1. XTANDI [Suspect]
     Active Substance: ENZALUTAMIDE
     Indication: PROSTATE CANCER
     Route: 048
     Dates: start: 20160527

REACTIONS (7)
  - Asthenia [Unknown]
  - Peripheral swelling [Unknown]
  - Dizziness [Unknown]
  - Depression [Unknown]
  - Faeces discoloured [Unknown]
  - Joint swelling [Unknown]
  - Decreased appetite [Unknown]
